FAERS Safety Report 18435534 (Version 2)
Quarter: 2020Q4

REPORT INFORMATION
  Report Type: Report from Study
  Country: None (occurrence: IL)
  Receive Date: 20201028
  Receipt Date: 20201105
  Transmission Date: 20210114
  Serious: Yes (Other)
  Sender: FDA-Public Use
  Company Number: IL-ABBVIE-20K-082-3624976-00

PATIENT
  Sex: Female

DRUGS (2)
  1. HUMIRA [Suspect]
     Active Substance: ADALIMUMAB
     Indication: COLITIS ULCERATIVE
     Route: 058
     Dates: start: 20161211, end: 202008
  2. HUMIRA [Suspect]
     Active Substance: ADALIMUMAB
     Route: 058
     Dates: start: 202008

REACTIONS (6)
  - Haematochezia [Not Recovered/Not Resolved]
  - Flatulence [Not Recovered/Not Resolved]
  - Haematochezia [Recovered/Resolved]
  - Colitis ulcerative [Recovering/Resolving]
  - Haemorrhage [Not Recovered/Not Resolved]
  - Abdominal discomfort [Not Recovered/Not Resolved]

NARRATIVE: CASE EVENT DATE: 2017
